FAERS Safety Report 15948947 (Version 1)
Quarter: 2019Q1

REPORT INFORMATION
  Report Type: Spontaneous
  Country: FR (occurrence: FR)
  Receive Date: 20190212
  Receipt Date: 20190212
  Transmission Date: 20190417
  Serious: Yes (Hospitalization)
  Sender: FDA-Public Use
  Company Number: FR-ACCORD-106828

PATIENT
  Age: 93 Year
  Sex: Male
  Weight: 65 kg

DRUGS (4)
  1. RAMIPRIL. [Suspect]
     Active Substance: RAMIPRIL
     Indication: HYPERTENSION
     Route: 048
  2. TOVIAZ [Suspect]
     Active Substance: FESOTERODINE FUMARATE
     Indication: DYSURIA
     Route: 048
  3. AVODART [Suspect]
     Active Substance: DUTASTERIDE
     Indication: DYSURIA
     Route: 048
  4. UROREC [Suspect]
     Active Substance: SILODOSIN
     Indication: DYSURIA
     Route: 048

REACTIONS (2)
  - Product administration error [Unknown]
  - Fall [Unknown]

NARRATIVE: CASE EVENT DATE: 20180206
